FAERS Safety Report 8208824-X (Version None)
Quarter: 2012Q1

REPORT INFORMATION
  Report Type: 
  Country: None (occurrence: None)
  Receive Date: 20120314
  Receipt Date: 20120308
  Transmission Date: 20120608
  Serious: Yes (Hospitalization)
  Sender: FDA-Public Use
  Company Number: US-PFIZER INC-2012062565

PATIENT
  Sex: Female
  Weight: 73.469 kg

DRUGS (7)
  1. SERTRALINE HYDROCHLORIDE [Suspect]
     Indication: DEPRESSION
     Dosage: 50 MG, DAILY
     Route: 048
     Dates: start: 20100101, end: 20120226
  2. KLONOPIN [Suspect]
     Indication: RELAXATION THERAPY
     Dosage: UNK, 2X/DAY
     Route: 048
     Dates: start: 20120101
  3. ARMODAFINIL [Concomitant]
     Dosage: UNK
     Route: 048
  4. XANAX [Concomitant]
     Indication: ANXIETY
     Dosage: 0.5 MG, 4X/DAY
     Route: 048
     Dates: end: 20120226
  5. ATIVAN [Concomitant]
     Indication: PERFORATED ULCER
  6. VISTARIL [Suspect]
     Indication: NERVOUS SYSTEM DISORDER
     Dosage: 50 MG, 3X/DAY
     Route: 048
     Dates: start: 20120101
  7. ATIVAN [Concomitant]
     Indication: PAIN
     Dosage: UNK
     Route: 048

REACTIONS (8)
  - HEADACHE [None]
  - NAUSEA [None]
  - FATIGUE [None]
  - HYPERSOMNIA [None]
  - DEPRESSION [None]
  - VOMITING [None]
  - DIZZINESS [None]
  - MALAISE [None]
